FAERS Safety Report 21303030 (Version 1)
Quarter: 2022Q3

REPORT INFORMATION
  Report Type: Spontaneous
  Country: US (occurrence: US)
  Receive Date: 20220907
  Receipt Date: 20220907
  Transmission Date: 20221027
  Serious: No
  Sender: FDA-Public Use
  Company Number: US-009507513-2208USA008360

PATIENT
  Sex: Female

DRUGS (1)
  1. PRINIVIL [Suspect]
     Active Substance: LISINOPRIL
     Dosage: 20 MILLIGRAM
     Route: 048

REACTIONS (2)
  - Drug hypersensitivity [Unknown]
  - Headache [Unknown]
